FAERS Safety Report 6575328-X (Version None)
Quarter: 2010Q1

REPORT INFORMATION
  Report Type: 
  Country: None (occurrence: None)
  Receive Date: 20100202
  Receipt Date: 20100120
  Transmission Date: 20100710
  Serious: Yes (Other)
  Sender: FDA-Public Use
  Company Number: 233517J09USA

PATIENT
  Age: 57 Year
  Sex: Female

DRUGS (4)
  1. REBIF [Suspect]
     Indication: MULTIPLE SCLEROSIS
     Dosage: 44 MCG, 3 IN 1 WEEKS, SUBCUTANEOUS
     Route: 058
     Dates: start: 20090626
  2. LYRICA [Concomitant]
  3. WELLBUTRIN [Concomitant]
  4. CYMBALTA [Concomitant]

REACTIONS (4)
  - AORTIC OCCLUSION [None]
  - CHEST DISCOMFORT [None]
  - CHEST PAIN [None]
  - VASCULAR OCCLUSION [None]
